FAERS Safety Report 16376824 (Version 3)
Quarter: 2019Q3

REPORT INFORMATION
  Report Type: Spontaneous
  Country: BR (occurrence: BR)
  Receive Date: 20190531
  Receipt Date: 20190701
  Transmission Date: 20191004
  Serious: Yes (Hospitalization, Other)
  Sender: FDA-Public Use
  Company Number: BR-PFIZER INC-2019232039

PATIENT
  Age: 30 Year
  Sex: Male
  Weight: 87 kg

DRUGS (6)
  1. DEXAMETHASONE. [Concomitant]
     Active Substance: DEXAMETHASONE
     Dosage: UNK UNK, 4X/DAY
     Dates: start: 20190514
  2. SUTENT [Suspect]
     Active Substance: SUNITINIB MALATE
     Indication: RENAL CANCER METASTATIC
     Dosage: 50 MG, CYCLIC (DAILY, 2 WEEKS OF USE AND 1 WEEK BREAK)
     Dates: start: 20190426
  3. MORPHINE [Concomitant]
     Active Substance: MORPHINE
     Dosage: UNK UNK, 4X/DAY
     Dates: start: 20190214
  4. GABAPENTIN. [Concomitant]
     Active Substance: GABAPENTIN
     Dosage: UNK UNK, 3X/DAY
     Dates: start: 20190214
  5. RANITIDINE. [Concomitant]
     Active Substance: RANITIDINE
     Indication: GASTRIC DISORDER
     Dosage: UNK UNK, 2X/DAY
     Dates: start: 20190514
  6. VONAU [Concomitant]
     Active Substance: ONDANSETRON HYDROCHLORIDE
     Indication: MALAISE
     Dosage: UNK UNK, 3X/DAY
     Dates: start: 20190514

REACTIONS (5)
  - Pleural effusion [Recovered/Resolved]
  - Movement disorder [Unknown]
  - Pyrexia [Unknown]
  - Neoplasm progression [Unknown]
  - Diplegia [Not Recovered/Not Resolved]

NARRATIVE: CASE EVENT DATE: 20190514
